FAERS Safety Report 9765167 (Version 1)
Quarter: 2013Q4

REPORT INFORMATION
  Report Type: Spontaneous
  Country: US (occurrence: US)
  Receive Date: 20131217
  Receipt Date: 20131217
  Transmission Date: 20140711
  Serious: No
  Sender: FDA-Public Use
  Company Number: US-GLAXOSMITHKLINE-A1012496A

PATIENT
  Sex: Female

DRUGS (1)
  1. SORIATANE [Suspect]
     Indication: PSORIASIS
     Dosage: 25MG TWICE PER DAY
     Route: 048
     Dates: start: 2009

REACTIONS (6)
  - Skin exfoliation [Not Recovered/Not Resolved]
  - Skin atrophy [Unknown]
  - Discomfort [Unknown]
  - Hyperhidrosis [Unknown]
  - Alopecia [Unknown]
  - Body temperature fluctuation [Unknown]
